FAERS Safety Report 7918350 (Version 2)
Quarter: 2015Q2

REPORT INFORMATION
  Report Type: Spontaneous
  Country: US (occurrence: US)
  Receive Date: 20110428
  Receipt Date: 20150423
  Transmission Date: 20150821
  Serious: Yes (Other)
  Sender: FDA-Public Use
  Company Number: US-ROCHE-669836

PATIENT
  Age: 15 Year
  Sex: Male
  Weight: 72.6 kg

DRUGS (1)
  1. ACCUTANE [Suspect]
     Active Substance: ISOTRETINOIN
     Indication: ACNE
     Route: 048
     Dates: start: 19990412, end: 19990812

REACTIONS (10)
  - Crohn^s disease [Unknown]
  - Inflammatory bowel disease [Unknown]
  - Anal fissure [Unknown]
  - Nasal dryness [Recovering/Resolving]
  - Dry skin [Unknown]
  - Paronychia [Unknown]
  - Proctitis [Unknown]
  - Lip dry [Unknown]
  - Irritable bowel syndrome [Unknown]
  - Proctitis ulcerative [Unknown]

NARRATIVE: CASE EVENT DATE: 19990510
